FAERS Safety Report 23713854 (Version 1)
Quarter: 2024Q2

REPORT INFORMATION
  Report Type: Spontaneous
  Country: GR (occurrence: GR)
  Receive Date: 20240405
  Receipt Date: 20240405
  Transmission Date: 20240715
  Serious: Yes (Other)
  Sender: FDA-Public Use
  Company Number: GR-TEVA-VS-3163617

PATIENT
  Age: 79 Year
  Sex: Female

DRUGS (5)
  1. METHOTREXATE [Suspect]
     Active Substance: METHOTREXATE
     Indication: Rheumatoid arthritis
     Dosage: 15 MILLIGRAM, QW,(15 MG, WEEKLY)
     Route: 065
     Dates: start: 201706
  2. METHOTREXATE [Suspect]
     Active Substance: METHOTREXATE
     Dosage: 10 MILLIGRAM, QW,(WEEKLY)
     Route: 065
     Dates: start: 201708
  3. METHOTREXATE [Suspect]
     Active Substance: METHOTREXATE
     Dosage: 12.5 MILLIGRAM, QW,(WEEKLY)
     Route: 065
     Dates: start: 201810
  4. MEDROL [Concomitant]
     Active Substance: METHYLPREDNISOLONE
     Indication: Rheumatoid arthritis
     Dosage: 2 MILLIGRAM, QD,(DAILY)
     Route: 065
     Dates: start: 201702
  5. LEFLUNOMIDE [Concomitant]
     Active Substance: LEFLUNOMIDE
     Indication: Rheumatoid arthritis
     Dosage: 20 MILLIGRAM, QD,(DAILY)
     Route: 065
     Dates: start: 201702

REACTIONS (2)
  - Transaminases increased [Unknown]
  - Condition aggravated [Unknown]

NARRATIVE: CASE EVENT DATE: 20170801
